FAERS Safety Report 14189813 (Version 1)
Quarter: 2017Q4

REPORT INFORMATION
  Report Type: Spontaneous
  Country: US (occurrence: US)
  Receive Date: 20171115
  Receipt Date: 20171115
  Transmission Date: 20180321
  Serious: Yes (Other)
  Sender: FDA-Public Use
  Company Number: US-PFIZER INC-2017485859

PATIENT
  Age: 5 Decade
  Sex: Female

DRUGS (1)
  1. GABAPENTIN. [Suspect]
     Active Substance: GABAPENTIN
     Indication: FIBROMYALGIA
     Dosage: 900 MG, 3X/DAY

REACTIONS (3)
  - Suicidal ideation [Unknown]
  - Product use in unapproved indication [Unknown]
  - Depressed mood [Unknown]
